FAERS Safety Report 13170194 (Version 2)
Quarter: 2017Q1

REPORT INFORMATION
  Report Type: Spontaneous
  Country: US (occurrence: US)
  Receive Date: 20170131
  Receipt Date: 20170209
  Transmission Date: 20170428
  Serious: Yes (Other)
  Sender: FDA-Public Use
  Company Number: US-MYLANLABS-2017M1005885

PATIENT

DRUGS (18)
  1. CLONIDINE. [Concomitant]
     Active Substance: CLONIDINE
     Indication: AGITATION
     Dosage: UNK, Q8H
     Route: 048
  2. DIGOXIN. [Concomitant]
     Active Substance: DIGOXIN
     Indication: ATRIAL FIBRILLATION
     Route: 042
  3. PARACETAMOL [Concomitant]
     Active Substance: ACETAMINOPHEN
     Indication: BODY TEMPERATURE INCREASED
     Route: 048
  4. OLANZAPINE. [Suspect]
     Active Substance: OLANZAPINE
     Dosage: 10 MG ON DAY 5
     Route: 065
  5. OXYCODONE [Concomitant]
     Active Substance: OXYCODONE
     Indication: ANALGESIC THERAPY
     Route: 065
  6. QUETIAPINE. [Suspect]
     Active Substance: QUETIAPINE
     Indication: DELIRIUM
  7. HALOPERIDOL. [Suspect]
     Active Substance: HALOPERIDOL
     Dosage: 10MG ON DAY 7
     Route: 042
  8. FENTANYL. [Concomitant]
     Active Substance: FENTANYL
     Indication: PROCEDURAL PAIN
     Route: 065
  9. MIDAZOLAM [Concomitant]
     Active Substance: MIDAZOLAM HYDROCHLORIDE
     Indication: AGITATION
     Route: 050
  10. GABAPENTIN. [Concomitant]
     Active Substance: GABAPENTIN
     Indication: ANALGESIC THERAPY
     Dosage: 900-1800 MG/DAY
     Route: 065
  11. KETAMINE [Concomitant]
     Active Substance: KETAMINE
     Indication: ANALGESIC THERAPY
     Dosage: 5-15 MG/H
     Route: 050
  12. HALOPERIDOL. [Suspect]
     Active Substance: HALOPERIDOL
     Dosage: 5MG ON DAYS 7, 8 AND 9
     Route: 042
  13. OLANZAPINE. [Suspect]
     Active Substance: OLANZAPINE
     Indication: DELIRIUM
     Dosage: 5MG ON DAY 4
     Route: 065
  14. OLANZAPINE. [Suspect]
     Active Substance: OLANZAPINE
     Dosage: TWO DOSES OF 10MG ON DAY 6
     Route: 065
  15. HALOPERIDOL. [Suspect]
     Active Substance: HALOPERIDOL
     Indication: DELIRIUM
     Dosage: 5MG ON DAY 4
     Route: 042
  16. HYDROMORPHONE [Concomitant]
     Active Substance: HYDROMORPHONE
     Indication: ANALGESIC THERAPY
     Dosage: AS NEEDED
     Route: 042
  17. METOPROLOL. [Concomitant]
     Active Substance: METOPROLOL
     Indication: ATRIAL FIBRILLATION
     Route: 065
  18. PROPOFOL. [Concomitant]
     Active Substance: PROPOFOL
     Indication: SEDATION
     Route: 050

REACTIONS (4)
  - Neuroleptic malignant syndrome [Recovering/Resolving]
  - Electrocardiogram QT prolonged [Recovered/Resolved]
  - Acute kidney injury [Unknown]
  - Atrial fibrillation [Unknown]
